FAERS Safety Report 15259181 (Version 1)
Quarter: 2018Q3

REPORT INFORMATION
  Report Type: Report from Study
  Country: GB (occurrence: GB)
  Receive Date: 20180809
  Receipt Date: 20180809
  Transmission Date: 20181010
  Serious: Yes (Other)
  Sender: FDA-Public Use
  Company Number: GB-ROCHE-2165918

PATIENT
  Age: 15 Year
  Sex: Male

DRUGS (2)
  1. SOMATROPIN. [Suspect]
     Active Substance: SOMATROPIN
     Indication: GROWTH HORMONE DEFICIENCY
     Route: 065
  2. CABERGOLINE. [Concomitant]
     Active Substance: CABERGOLINE

REACTIONS (3)
  - Pituitary tumour [Not Recovered/Not Resolved]
  - Pituitary haemorrhage [Not Recovered/Not Resolved]
  - Neoplasm progression [Not Recovered/Not Resolved]
